FAERS Safety Report 7617367-3 (Version None)
Quarter: 2011Q3

REPORT INFORMATION
  Report Type: 
  Country: None (occurrence: None)
  Receive Date: 20110718
  Receipt Date: 20110711
  Transmission Date: 20111222
  Serious: Yes (Other)
  Sender: FDA-Public Use
  Company Number: US-PFIZER INC-2011156042

PATIENT
  Sex: Female

DRUGS (2)
  1. ZITHROMAX [Suspect]
     Dosage: UNK
  2. PRINIVIL [Suspect]

REACTIONS (2)
  - ANGIOEDEMA [None]
  - ANAPHYLACTIC REACTION [None]
